FAERS Safety Report 5147127-7 (Version None)
Quarter: 2006Q4

REPORT INFORMATION
  Report Type: 
  Country: None (occurrence: None)
  Receive Date: 20061103
  Receipt Date: 20061020
  Transmission Date: 20070319
  Serious: Yes (Death)
  Sender: FDA-Public Use
  Company Number: S06-CZE-04576-01

PATIENT
  Age: 65 Year
  Sex: Male

DRUGS (1)
  1. CIPRALEX (ESCITALOPRAM) [Suspect]
     Indication: ADJUSTMENT DISORDER
     Dates: start: 20030507, end: 20030608

REACTIONS (1)
  - CEREBROVASCULAR ACCIDENT [None]
